FAERS Safety Report 6571724-5 (Version None)
Quarter: 2010Q1

REPORT INFORMATION
  Report Type: 
  Country: None (occurrence: None)
  Receive Date: 20100205
  Receipt Date: 20100128
  Transmission Date: 20100710
  Serious: Yes (Congenital Anomaly)
  Sender: FDA-Public Use
  Company Number: US-PFIZER INC-2010014324

PATIENT
  Sex: Female
  Weight: 3.13 kg

DRUGS (5)
  1. NELFINAVIR MESILATE [Suspect]
     Indication: HIV INFECTION
     Dosage: 2500 MG, DAILY
     Route: 048
     Dates: start: 20090924
  2. ZIDOVUDINE [Suspect]
     Dosage: UNK
     Route: 042
     Dates: start: 20100109, end: 20100109
  3. SAQUINAVIR [Suspect]
     Indication: HIV INFECTION
     Dosage: 2000 MG, UNK
     Route: 048
     Dates: start: 20070319, end: 20090924
  4. RITONAVIR [Suspect]
     Indication: HIV INFECTION
     Dosage: 200 MG, UNK
     Route: 048
     Dates: start: 20070319, end: 20090924
  5. LAMIVUDINE + ZIDOVUDINE [Suspect]
     Indication: HIV INFECTION
     Dosage: 2 DF, UNK
     Route: 048
     Dates: start: 20070319

REACTIONS (2)
  - CONGENITAL NAIL DISORDER [None]
  - DRUG EXPOSURE DURING PREGNANCY [None]
